FAERS Safety Report 23705221 (Version 1)
Quarter: 2024Q2

REPORT INFORMATION
  Report Type: Spontaneous
  Country: US (occurrence: None)
  Receive Date: 20240404
  Receipt Date: 20240404
  Transmission Date: 20240715
  Serious: No
  Sender: FDA-Public Use
  Company Number: 2024A081011

PATIENT
  Sex: Male

DRUGS (2)
  1. PRILOSEC OTC [Suspect]
     Active Substance: OMEPRAZOLE MAGNESIUM
     Indication: Abdominal pain upper
     Dosage: 1 TABLET, 1 /DAY, MORNING
     Dates: start: 20240315
  2. PRILOSEC OTC [Suspect]
     Active Substance: OMEPRAZOLE MAGNESIUM
     Indication: Gastrooesophageal reflux disease
     Dosage: 1 TABLET, 1 /DAY, MORNING
     Dates: start: 20240315

REACTIONS (8)
  - Nervousness [Recovering/Resolving]
  - Feeling jittery [Recovering/Resolving]
  - Euphoric mood [Not Recovered/Not Resolved]
  - Product use in unapproved indication [Unknown]
  - Headache [Not Recovered/Not Resolved]
  - Somnolence [Not Recovered/Not Resolved]
  - Dry mouth [Not Recovered/Not Resolved]
  - Vision blurred [Not Recovered/Not Resolved]

NARRATIVE: CASE EVENT DATE: 20240301
